FAERS Safety Report 7951008-0 (Version None)
Quarter: 2011Q4

REPORT INFORMATION
  Report Type: 
  Country: None (occurrence: None)
  Receive Date: 20111201
  Receipt Date: 20111123
  Transmission Date: 20120403
  Serious: No
  Sender: FDA-Public Use
  Company Number: US-BIOGENIDEC-2011BI045057

PATIENT
  Age: 66 Year
  Sex: Male

DRUGS (2)
  1. TYSABRI [Suspect]
     Indication: MULTIPLE SCLEROSIS
     Route: 042
     Dates: start: 20110830, end: 20111001
  2. BENADRYL [Concomitant]
     Indication: PREMEDICATION
     Route: 065
     Dates: start: 20110830, end: 20110901

REACTIONS (6)
  - DYSGEUSIA [None]
  - PAROSMIA [None]
  - SUICIDAL IDEATION [None]
  - SOMNOLENCE [None]
  - INSOMNIA [None]
  - ANGER [None]
